FAERS Safety Report 10021157 (Version 1)
Quarter: 2014Q1

REPORT INFORMATION
  Report Type: Spontaneous
  Country: US (occurrence: None)
  Receive Date: 20140318
  Receipt Date: 20140318
  Transmission Date: 20141002
  Serious: Yes (Other)
  Sender: FDA-Public Use
  Company Number: None

PATIENT
  Age: 86 Year
  Sex: Female

DRUGS (4)
  1. LINACLOTIDE [Suspect]
     Indication: IRRITABLE BOWEL SYNDROME
     Dosage: LINACLOTIDE, QD, ORAL
     Route: 048
  2. ATENOLOL [Concomitant]
  3. ATORVASTATIN [Concomitant]
  4. UNKNOWN ^BLADDER INFECTION^ PILL [Concomitant]

REACTIONS (4)
  - Tremor [None]
  - Dry mouth [None]
  - Sensation of foreign body [None]
  - Dyspnoea [None]
